FAERS Safety Report 8133837-6 (Version None)
Quarter: 2012Q1

REPORT INFORMATION
  Report Type: 
  Country: None (occurrence: None)
  Receive Date: 20120213
  Receipt Date: 20120209
  Transmission Date: 20120608
  Serious: Yes (Life-Threatening, Hospitalization)
  Sender: FDA-Public Use
  Company Number: AU-B.I. PHARMACEUTICALS,INC./RIDGEFIELD-2011-AU-02395AU

PATIENT
  Sex: Female

DRUGS (5)
  1. MICARDIS [Concomitant]
     Dosage: 40 MG
  2. LIPITOR [Concomitant]
     Dosage: 20 MG
  3. LEVOTHYROXINE SODIUM [Concomitant]
     Dosage: 50 MCG
  4. PRADAXA [Suspect]
     Indication: ATRIAL FIBRILLATION
     Dosage: 220 MG
     Dates: start: 20110801, end: 20111124
  5. SOTALOL HCL [Concomitant]
     Indication: ATRIAL FIBRILLATION
     Dosage: 80 MG

REACTIONS (1)
  - PERICARDIAL EFFUSION [None]
